FAERS Safety Report 14836835 (Version 2)
Quarter: 2018Q3

REPORT INFORMATION
  Report Type: Report from Study
  Country: BR (occurrence: BR)
  Receive Date: 20180502
  Receipt Date: 20180831
  Transmission Date: 20181010
  Serious: Yes (Death, Hospitalization, Other)
  Sender: FDA-Public Use
  Company Number: BR-INCYTE CORPORATION-2014IN004192

PATIENT

DRUGS (9)
  1. NATRILIX                           /00340101/ [Concomitant]
     Active Substance: INDAPAMIDE
     Indication: HYPERTENSION
     Dosage: 1 DF, QD
     Route: 048
  2. HEMAX                              /00909301/ [Concomitant]
     Indication: PRODUCT USED FOR UNKNOWN INDICATION
     Dosage: UNK
     Route: 065
  3. SANDOSTATIN LAR DEPOT [Suspect]
     Active Substance: OCTREOTIDE ACETATE
     Indication: METASTASES TO LIVER
     Dosage: 1 DF, QMO (REPORTED AS EACH 28 DAYS)
     Route: 030
     Dates: start: 2005
  4. ATENOLOL. [Concomitant]
     Active Substance: ATENOLOL
     Indication: HYPERTENSION
     Dosage: 75 MG, (1 TABLET OF 50 MG AND 1 TABLET OF 25 MG PER DAY)
     Route: 048
  5. AMLODIPINE BESILATE [Concomitant]
     Active Substance: AMLODIPINE BESYLATE
     Indication: HYPERTENSION
     Dosage: 1 DF, BID
     Route: 048
  6. JAKAVI [Suspect]
     Active Substance: RUXOLITINIB
     Indication: CEREBRAL DISORDER
     Dosage: UNK
     Route: 065
  7. SANDOSTATIN LAR DEPOT [Suspect]
     Active Substance: OCTREOTIDE ACETATE
     Indication: NEUROENDOCRINE TUMOUR
     Dosage: POWDER AND SOLVENT FOR SUSPENSION FOR INJECTION
  8. GALVUS [Concomitant]
     Active Substance: VILDAGLIPTIN
     Indication: DIABETES MELLITUS
     Dosage: 2 DF, QD
     Route: 065
  9. LOSARTAN. [Concomitant]
     Active Substance: LOSARTAN
     Indication: HYPERTENSION
     Dosage: 1 DF, BID
     Route: 048

REACTIONS (23)
  - Anaemia [Unknown]
  - Gait inability [Unknown]
  - Pneumonia [Recovered/Resolved]
  - Tuberculosis [Fatal]
  - Pyrexia [Unknown]
  - Dyspnoea [Unknown]
  - Cholecystitis [Recovered/Resolved]
  - Pulmonary embolism [Recovering/Resolving]
  - Blood pressure decreased [Unknown]
  - Product use in unapproved indication [Unknown]
  - Metastases to liver [Fatal]
  - Myeloproliferative neoplasm [Fatal]
  - Fatigue [Unknown]
  - Weight decreased [Unknown]
  - Pain in extremity [Recovering/Resolving]
  - Splenomegaly [Unknown]
  - Bone marrow failure [Unknown]
  - Peripheral swelling [Recovering/Resolving]
  - Tremor [Unknown]
  - Cough [Recovered/Resolved]
  - Asthenia [Fatal]
  - Malaise [Not Recovered/Not Resolved]
  - Thrombosis [Recovered/Resolved]

NARRATIVE: CASE EVENT DATE: 201411
